FAERS Safety Report 9558367 (Version 2)
Quarter: 2013Q4

REPORT INFORMATION
  Report Type: Spontaneous
  Country: GB (occurrence: GB)
  Receive Date: 20130926
  Receipt Date: 20131202
  Transmission Date: 20140711
  Serious: Yes (Death, Other)
  Sender: FDA-Public Use
  Company Number: GB-VERTEX PHARMACEUTICALS INC-2013-009973

PATIENT
  Age: 47 Year
  Sex: Male
  Weight: 86.8 kg

DRUGS (3)
  1. INCIVO [Suspect]
     Indication: PRODUCT USED FOR UNKNOWN INDICATION
     Dosage: 1125 MG, BID
     Route: 048
     Dates: start: 20130709, end: 20130918
  2. RIBAVIRIN [Suspect]
     Indication: PRODUCT USED FOR UNKNOWN INDICATION
     Dosage: DOSAGE FORM: CAPSULES, THE STOP DATE WAS LISTED AS 19-OCT-2013
     Route: 065
     Dates: start: 20130603
  3. PEGINTERFERON ALFA 2A [Suspect]
     Indication: PRODUCT USED FOR UNKNOWN INDICATION
     Dosage: DOSAGE FORM: UNSPECIFIED, THE STOP DATE WAS LISTED AS 19-OCT-2013
     Route: 050

REACTIONS (3)
  - Death [Fatal]
  - Suicidal ideation [Recovered/Resolved]
  - Irritability [Unknown]
